FAERS Safety Report 4374866-8 (Version None)
Quarter: 2004Q2

REPORT INFORMATION
  Report Type: 
  Country: None (occurrence: None)
  Receive Date: 20040602
  Receipt Date: 20031001
  Transmission Date: 20050107
  Serious: Yes (Hospitalization, Other)
  Sender: FDA-Public Use
  Company Number: US-JNJFOC-20031005878

PATIENT
  Age: 64 Year
  Sex: Male
  Weight: 94.3482 kg

DRUGS (3)
  1. PROPULSID [Suspect]
     Indication: GASTROOESOPHAGEAL REFLUX DISEASE
     Dosage: 20 MG
     Dates: start: 19960401, end: 19960601
  2. CLARITHROMYCIN [Concomitant]
  3. CIPROFLOXACIN [Concomitant]

REACTIONS (6)
  - CARDIAC DISORDER [None]
  - CHEST DISCOMFORT [None]
  - DIZZINESS [None]
  - EPIGASTRIC DISCOMFORT [None]
  - PALPITATIONS [None]
  - VENTRICULAR TACHYCARDIA [None]
